FAERS Safety Report 8455963-4 (Version None)
Quarter: 2012Q2

REPORT INFORMATION
  Report Type: 
  Country: None (occurrence: None)
  Receive Date: 20120323
  Receipt Date: 20111114
  Transmission Date: 20120825
  Serious: Yes (Other)
  Sender: FDA-Public Use
  Company Number: 163-21880-11082924

PATIENT
  Age: 73 Year
  Sex: Male

DRUGS (13)
  1. LISINOPRIL [Concomitant]
  2. ACETAMINOPHEN [Concomitant]
  3. REVLIMID [Suspect]
     Indication: MULTIPLE MYELOMA
     Dosage: 10 MG, 1 IN 1 D, PO; 5 MG, 1 IN 1 D, PO; 5 MG, 1 IN 2 D, PO; 7.5 MG, 1 IN 1 D, PO
     Route: 048
     Dates: start: 20110823
  4. REVLIMID [Suspect]
     Indication: MULTIPLE MYELOMA
     Dosage: 10 MG, 1 IN 1 D, PO; 5 MG, 1 IN 1 D, PO; 5 MG, 1 IN 2 D, PO; 7.5 MG, 1 IN 1 D, PO
     Route: 048
     Dates: start: 20111113
  5. REVLIMID [Suspect]
     Indication: MULTIPLE MYELOMA
     Dosage: 10 MG, 1 IN 1 D, PO; 5 MG, 1 IN 1 D, PO; 5 MG, 1 IN 2 D, PO; 7.5 MG, 1 IN 1 D, PO
     Route: 048
     Dates: start: 20110816
  6. PYRIDOXINE HYDROCHLORIDE [Concomitant]
  7. MINIPRESS [Concomitant]
  8. PRAZOSIN GITS [Concomitant]
  9. VIAGRA [Concomitant]
  10. IRON (IRON) [Concomitant]
  11. ASPIRIN [Concomitant]
  12. SIMVASTATIN [Concomitant]
  13. TOPROL-XL [Concomitant]

REACTIONS (1)
  - RENAL FAILURE [None]
